FAERS Safety Report 25728728 (Version 3)
Quarter: 2025Q4

REPORT INFORMATION
  Report Type: Spontaneous
  Country: JP (occurrence: JP)
  Receive Date: 20250826
  Receipt Date: 20251219
  Transmission Date: 20260118
  Serious: Yes (Hospitalization, Other)
  Sender: MERCK SHARP & DOHME LLC
  Company Number: JP-009507513-2322384

PATIENT
  Age: 7 Decade
  Sex: Female

DRUGS (2)
  1. KEYTRUDA [Suspect]
     Active Substance: PEMBROLIZUMAB
     Route: 041
     Dates: start: 20250804
  2. LENVIMA [Suspect]
     Active Substance: LENVATINIB
     Indication: Uterine cancer
     Dosage: STRENGHT: 10 MG
     Route: 048
     Dates: start: 20250804

REACTIONS (4)
  - Duodenal perforation [Unknown]
  - Impaired healing [Unknown]
  - Duodenal ulcer [Unknown]
  - Inflammation [Unknown]

NARRATIVE: CASE EVENT DATE: 20250101
